FAERS Safety Report 8067427-0 (Version None)
Quarter: 2012Q1

REPORT INFORMATION
  Report Type: 
  Country: None (occurrence: None)
  Receive Date: 20120124
  Receipt Date: 20120118
  Transmission Date: 20120608
  Serious: Yes (Hospitalization)
  Sender: FDA-Public Use
  Company Number: BR-ASTRAZENECA-2012SE03890

PATIENT
  Age: 51 Year
  Sex: Female
  Weight: 72 kg

DRUGS (2)
  1. SYMBICORT [Suspect]
     Indication: ASTHMA
     Dosage: 320/9MCG
     Route: 055
     Dates: start: 20020101, end: 20110901
  2. DIET SUPPLEMENT [Concomitant]

REACTIONS (4)
  - DIABETES MELLITUS [None]
  - HEPATIC STEATOSIS [None]
  - HYPERTENSION [None]
  - BLOOD CHOLESTEROL INCREASED [None]
